FAERS Safety Report 5480134-3 (Version None)
Quarter: 2007Q4

REPORT INFORMATION
  Report Type: 
  Country: None (occurrence: None)
  Receive Date: 20071009
  Receipt Date: 20071001
  Transmission Date: 20080405
  Serious: Yes (Hospitalization)
  Sender: FDA-Public Use
  Company Number: HQWYE529713AUG07

PATIENT
  Sex: Female

DRUGS (4)
  1. HYPEN [Suspect]
     Indication: ANALGESIC THERAPY
     Route: 048
     Dates: start: 20070713, end: 20070717
  2. FEXOFENADINE HYDROCHLORIDE [Concomitant]
     Dosage: DOSE AND FREQUENCY NOT SPECIFIED
     Dates: start: 20061031, end: 20070802
  3. ROSUVASTATIN [Concomitant]
     Dosage: DOSE AND FREQUENCY NOT SPECIFIED
     Dates: start: 20070525
  4. AMLODIPINE BESYLATE [Concomitant]
     Dosage: DOSE AND FREQUENCY NOT SPECIFIED
     Dates: start: 20050523

REACTIONS (1)
  - HEPATIC FUNCTION ABNORMAL [None]
